FAERS Safety Report 6793226-3 (Version None)
Quarter: 2010Q2

REPORT INFORMATION
  Report Type: 
  Country: None (occurrence: None)
  Receive Date: 20100624
  Receipt Date: 20090831
  Transmission Date: 20101027
  Serious: Yes (Other)
  Sender: FDA-Public Use
  Company Number: US-MYLANLABS-2009S1015191

PATIENT
  Age: 56 Year
  Sex: Female

DRUGS (7)
  1. CLOZAPINE [Suspect]
     Indication: BIPOLAR I DISORDER
     Route: 048
     Dates: end: 20090821
  2. CLOZAPINE [Suspect]
     Indication: SCHIZOPHRENIA
     Route: 048
     Dates: end: 20090821
  3. CLOZAPINE [Suspect]
     Route: 048
     Dates: end: 20090821
  4. CLOZAPINE [Suspect]
     Route: 048
     Dates: end: 20090821
  5. NICOTINE [Concomitant]
     Route: 062
  6. MIRALAX [Concomitant]
     Route: 048
  7. PREMARIN [Concomitant]
     Route: 067

REACTIONS (1)
  - GRANULOCYTOPENIA [None]
